FAERS Safety Report 25968178 (Version 1)
Quarter: 2025Q4

REPORT INFORMATION
  Report Type: Report from Study
  Country: EU (occurrence: EU)
  Receive Date: 20251028
  Receipt Date: 20251028
  Transmission Date: 20260118
  Serious: Yes (Other)
  Sender: ALEXION PHARMACEUTICALS
  Company Number: EU-ASTRAZENECA-202510EEA023375IE

PATIENT
  Age: 36 Year
  Sex: Female

DRUGS (2)
  1. KANUMA [Suspect]
     Active Substance: SEBELIPASE ALFA
     Indication: Lysosomal acid lipase deficiency
     Dosage: 60 MILLIGRAM, Q2W
  2. KANUMA [Suspect]
     Active Substance: SEBELIPASE ALFA
     Dosage: 60 MILLIGRAM, Q2W

REACTIONS (1)
  - Infusion site thrombosis [Recovering/Resolving]

NARRATIVE: CASE EVENT DATE: 20251021
